FAERS Safety Report 26071538 (Version 1)
Quarter: 2025Q4

REPORT INFORMATION
  Report Type: Spontaneous
  Country: CN (occurrence: CN)
  Receive Date: 20251120
  Receipt Date: 20251120
  Transmission Date: 20260117
  Serious: Yes (Hospitalization)
  Sender: EISAI
  Company Number: CN-Eisai-EC-2025-200246

PATIENT
  Age: 50 Year
  Sex: Female
  Weight: 70 kg

DRUGS (2)
  1. ERIBULIN [Suspect]
     Active Substance: ERIBULIN
     Indication: Breast cancer
     Dosage: ON DAYS 1 AND 8
     Route: 042
     Dates: start: 20251024, end: 20251031
  2. CISPLATIN [Concomitant]
     Active Substance: CISPLATIN
     Indication: Breast cancer
     Dosage: ON DAYS 2-4
     Route: 041
     Dates: start: 20251025, end: 20251027

REACTIONS (1)
  - Myelosuppression [Recovering/Resolving]

NARRATIVE: CASE EVENT DATE: 20251101
